FAERS Safety Report 6707212-2 (Version None)
Quarter: 2010Q2

REPORT INFORMATION
  Report Type: 
  Country: None (occurrence: None)
  Receive Date: 20100503
  Receipt Date: 20091013
  Transmission Date: 20101027
  Serious: No
  Sender: FDA-Public Use
  Company Number: US-ASTRAZENECA-2009SE19903

PATIENT
  Sex: Female

DRUGS (4)
  1. NEXIUM [Suspect]
     Indication: GASTRITIS
     Route: 048
     Dates: start: 20091009
  2. NEXIUM [Suspect]
     Indication: DUODENITIS
     Route: 048
     Dates: start: 20091009
  3. ZEGERID [Concomitant]
     Indication: GASTRITIS
  4. ZEGERID [Concomitant]
     Indication: DUODENITIS

REACTIONS (3)
  - DIZZINESS [None]
  - FATIGUE [None]
  - HYPERCHLORHYDRIA [None]
